FAERS Safety Report 18714798 (Version 1)
Quarter: 2021Q1

REPORT INFORMATION
  Report Type: Report from Study
  Country: FR (occurrence: FR)
  Receive Date: 20210107
  Receipt Date: 20210107
  Transmission Date: 20210419
  Serious: Yes (Other)
  Sender: FDA-Public Use
  Company Number: FR-JNJFOC-20210102929

PATIENT

DRUGS (1)
  1. STELARA [Suspect]
     Active Substance: USTEKINUMAB
     Indication: CROHN^S DISEASE
     Route: 058

REACTIONS (6)
  - Adverse event [Unknown]
  - Neoplasm malignant [Unknown]
  - Exposure during pregnancy [Unknown]
  - Off label use [Unknown]
  - Product use issue [Unknown]
  - Suicide attempt [Unknown]
